FAERS Safety Report 22671592 (Version 6)
Quarter: 2023Q4

REPORT INFORMATION
  Report Type: Spontaneous
  Country: US (occurrence: US)
  Receive Date: 20230705
  Receipt Date: 20231011
  Transmission Date: 20240109
  Serious: Yes (Hospitalization)
  Sender: FDA-Public Use
  Company Number: US-AMGEN-USASP2023114739

PATIENT
  Age: 74 Year
  Sex: Female

DRUGS (2)
  1. TAVNEOS [Suspect]
     Active Substance: AVACOPAN
     Indication: Granulomatosis with polyangiitis
     Dosage: 30 MILLIGRAM, BID, WITH FOOD (TAKE 3 CAPSULES (30 MG) BY MOUTH TWICE DAILY WITH FOOD)
     Route: 048
  2. TAVNEOS [Suspect]
     Active Substance: AVACOPAN
     Dosage: 30 MILLIGRAM, BID, WITH FOOD (TAKE 3 CAPSULES (30 MG) BY MOUTH TWICE DAILY WITH FOOD)
     Route: 048
     Dates: start: 20230807

REACTIONS (4)
  - Anaemia [Unknown]
  - Osteoporosis [Unknown]
  - Hospitalisation [Unknown]
  - Decreased appetite [Unknown]

NARRATIVE: CASE EVENT DATE: 20230101
